FAERS Safety Report 8511541-X (Version None)
Quarter: 2012Q3

REPORT INFORMATION
  Report Type: 
  Country: None (occurrence: None)
  Receive Date: 20120716
  Receipt Date: 20120708
  Transmission Date: 20120928
  Serious: No
  Sender: FDA-Public Use
  Company Number: PHHY2012TH017794

PATIENT
  Sex: Male

DRUGS (4)
  1. IMATINIB MESYLATE [Suspect]
     Dosage: 600 MG
     Route: 048
  2. IMATINIB MESYLATE [Suspect]
     Indication: CHRONIC MYELOID LEUKAEMIA
     Dosage: 400 MG
     Route: 048
  3. TASIGNA [Suspect]
  4. SPRYCEL [Suspect]

REACTIONS (1)
  - DRUG RESISTANCE [None]
